FAERS Safety Report 14764627 (Version 1)
Quarter: 2018Q2

REPORT INFORMATION
  Report Type: Spontaneous
  Country: US (occurrence: US)
  Receive Date: 20180416
  Receipt Date: 20180416
  Transmission Date: 20180711
  Serious: Yes (Life-Threatening, Hospitalization)
  Sender: FDA-Public Use
  Company Number: PHEH2018US014030

PATIENT
  Sex: Male

DRUGS (1)
  1. SANDOSTATIN [Suspect]
     Active Substance: OCTREOTIDE ACETATE
     Indication: CARCINOID SYNDROME
     Dosage: UNK
     Route: 065
     Dates: start: 20050102

REACTIONS (5)
  - Staphylococcal infection [Unknown]
  - Apparent death [Unknown]
  - Mesenteric haemorrhage [Unknown]
  - Malaise [Unknown]
  - Weight decreased [Unknown]
